FAERS Safety Report 20174544 (Version 1)
Quarter: 2021Q4

REPORT INFORMATION
  Report Type: Spontaneous
  Country: JP (occurrence: JP)
  Receive Date: 20211213
  Receipt Date: 20211213
  Transmission Date: 20220304
  Serious: Yes (Hospitalization, Other)
  Sender: FDA-Public Use
  Company Number: JP-PFIZER INC-202101690944

PATIENT
  Sex: Female

DRUGS (2)
  1. ENBREL [Suspect]
     Active Substance: ETANERCEPT
     Indication: Product used for unknown indication
     Dosage: 25 MG, WEEKLY
     Route: 058
  2. ASPIRIN [Concomitant]
     Active Substance: ASPIRIN
     Indication: Cardiac disorder
     Dosage: UNK
     Route: 048

REACTIONS (12)
  - Haemorrhage [Unknown]
  - Interstitial lung disease [Unknown]
  - Hip surgery [Unknown]
  - Eye operation [Unknown]
  - Cardiac operation [Unknown]
  - Herpes zoster [Unknown]
  - Chloasma [Unknown]
  - Pruritus [Unknown]
  - Neuritic plaques [Unknown]
  - Solar lentigo [Unknown]
  - Finger deformity [Unknown]
  - Pain in extremity [Unknown]
